FAERS Safety Report 16375641 (Version 1)
Quarter: 2019Q2

REPORT INFORMATION
  Report Type: Spontaneous
  Country: US (occurrence: US)
  Receive Date: 20190531
  Receipt Date: 20190531
  Transmission Date: 20190711
  Serious: No
  Sender: FDA-Public Use
  Company Number: US-DRREDDYS-USA/USA/18/0099386

PATIENT
  Age: 66 Year
  Sex: Male

DRUGS (1)
  1. OLANZAPINE TABLETS 2.5 MG, 5 MG, 7.5 MG, 10 MG [Suspect]
     Active Substance: OLANZAPINE
     Indication: BIPOLAR DISORDER
     Dosage: NIGHTLY FOR A FEW MONTHS
     Route: 048

REACTIONS (1)
  - Somnolence [Unknown]
